FAERS Safety Report 23602800 (Version 4)
Quarter: 2024Q1

REPORT INFORMATION
  Report Type: Report from Study
  Country: CA (occurrence: CA)
  Receive Date: 20240306
  Receipt Date: 20240327
  Transmission Date: 20240409
  Serious: Yes (Hospitalization, Other)
  Sender: FDA-Public Use
  Company Number: CA-BEH-2023166896

PATIENT
  Age: 11 Month
  Sex: Female

DRUGS (15)
  1. HIZENTRA [Suspect]
     Active Substance: HUMAN IMMUNOGLOBULIN G
     Indication: Secondary immunodeficiency
     Dosage: 1 GRAM, QW
     Route: 065
     Dates: start: 20231215
  2. HIZENTRA [Suspect]
     Active Substance: HUMAN IMMUNOGLOBULIN G
     Dosage: UNK
     Route: 065
     Dates: start: 20231228
  3. HIZENTRA [Suspect]
     Active Substance: HUMAN IMMUNOGLOBULIN G
     Dosage: UNK
     Route: 065
     Dates: start: 20240103
  4. HIZENTRA [Suspect]
     Active Substance: HUMAN IMMUNOGLOBULIN G
     Dosage: UNK
     Route: 065
     Dates: start: 20240111
  5. HIZENTRA [Suspect]
     Active Substance: HUMAN IMMUNOGLOBULIN G
     Dosage: UNK
     Route: 065
     Dates: start: 20240116
  6. HIZENTRA [Suspect]
     Active Substance: HUMAN IMMUNOGLOBULIN G
     Dosage: UNK
     Route: 065
     Dates: start: 20240123
  7. HIZENTRA [Suspect]
     Active Substance: HUMAN IMMUNOGLOBULIN G
     Dosage: UNK
     Route: 065
     Dates: start: 20240130
  8. HIZENTRA [Suspect]
     Active Substance: HUMAN IMMUNOGLOBULIN G
     Dosage: UNK
     Route: 065
     Dates: start: 20240206
  9. HIZENTRA [Suspect]
     Active Substance: HUMAN IMMUNOGLOBULIN G
     Dosage: UNK
     Route: 065
     Dates: start: 20240214
  10. HIZENTRA [Suspect]
     Active Substance: HUMAN IMMUNOGLOBULIN G
     Dosage: UNK
     Route: 065
     Dates: start: 20240220
  11. HIZENTRA [Suspect]
     Active Substance: HUMAN IMMUNOGLOBULIN G
     Dosage: UNK
     Route: 065
     Dates: start: 20240227
  12. HIZENTRA [Suspect]
     Active Substance: HUMAN IMMUNOGLOBULIN G
     Dosage: UNK
     Route: 058
     Dates: start: 20240319
  13. EMLA [Concomitant]
     Active Substance: LIDOCAINE\PRILOCAINE
  14. EMLA [Concomitant]
     Active Substance: LIDOCAINE\PRILOCAINE
     Dosage: UNK
     Route: 065
     Dates: start: 20240111
  15. EMLA [Concomitant]
     Active Substance: LIDOCAINE\PRILOCAINE
     Dosage: UNK
     Route: 065
     Dates: start: 20240227

REACTIONS (68)
  - Application site pain [Unknown]
  - Cough [Unknown]
  - Rhinorrhoea [Unknown]
  - Increased viscosity of upper respiratory secretion [Unknown]
  - Rhinorrhoea [Unknown]
  - Fatigue [Unknown]
  - Pyrexia [Recovered/Resolved]
  - Wheezing [Unknown]
  - Use of accessory respiratory muscles [Unknown]
  - Oxygen saturation decreased [Unknown]
  - Respiratory rate increased [Unknown]
  - Injection site oedema [Unknown]
  - Dyspnoea [Unknown]
  - Oropharyngeal pain [Unknown]
  - Myalgia [Unknown]
  - Headache [Unknown]
  - Arthralgia [Unknown]
  - Nasopharyngitis [Recovering/Resolving]
  - Dermatitis contact [Unknown]
  - Injection site induration [Unknown]
  - Injection site haemorrhage [Recovered/Resolved]
  - Injection site bruising [Unknown]
  - Injection site oedema [Unknown]
  - Cough [Unknown]
  - Injection site oedema [Unknown]
  - Increased viscosity of upper respiratory secretion [Unknown]
  - Productive cough [Unknown]
  - Discomfort [Unknown]
  - Rhinorrhoea [Unknown]
  - Wheezing [Unknown]
  - Productive cough [Unknown]
  - Oxygen saturation decreased [Unknown]
  - Pyrexia [Unknown]
  - Pyrexia [Unknown]
  - Rales [Unknown]
  - Chest pain [Unknown]
  - Injection site induration [Unknown]
  - Epistaxis [Unknown]
  - Fatigue [Unknown]
  - Dyspnoea [Recovered/Resolved]
  - Influenza [Unknown]
  - Enterovirus infection [Unknown]
  - Rhinovirus infection [Unknown]
  - Gastroenteritis [Unknown]
  - Nausea [Unknown]
  - Abnormal faeces [Unknown]
  - Infusion site irritation [Unknown]
  - Infusion site oedema [Unknown]
  - Injection site oedema [Unknown]
  - Injection site erythema [Unknown]
  - Pneumonia [Recovering/Resolving]
  - Sneezing [Recovering/Resolving]
  - Wheezing [Recovering/Resolving]
  - Increased viscosity of upper respiratory secretion [Recovering/Resolving]
  - Dyspnoea [Recovering/Resolving]
  - Oxygen saturation decreased [Recovering/Resolving]
  - Injection site oedema [Unknown]
  - Oxygen saturation decreased [Unknown]
  - Respiratory rate increased [Unknown]
  - Heart rate increased [Unknown]
  - Wheezing [Unknown]
  - Increased upper airway secretion [Unknown]
  - Infusion site haemorrhage [Unknown]
  - Upper respiratory tract congestion [Unknown]
  - Dyspnoea [Unknown]
  - Oxygen saturation decreased [Unknown]
  - No adverse event [Unknown]
  - Product dose omission issue [Unknown]

NARRATIVE: CASE EVENT DATE: 20231215
